FAERS Safety Report 8965502 (Version 1)
Quarter: 2012Q4

REPORT INFORMATION
  Report Type: Spontaneous
  Country: US (occurrence: None)
  Receive Date: 20121205
  Receipt Date: 20121205
  Transmission Date: 20130627
  Serious: Yes (Other)
  Sender: FDA-Public Use
  Company Number: 2012AM006851

PATIENT
  Sex: Female

DRUGS (5)
  1. SYMLINPEN [Suspect]
     Dosage: 60 MCG; TID; SC
     Route: 058
     Dates: start: 2009
  2. SYMLINPEN [Suspect]
     Dosage: 30 MCG: TID; SC
     Route: 058
     Dates: start: 2009
  3. SYMLINPEN [Suspect]
     Dosage: 15 MCG; TID; SC
     Route: 058
     Dates: start: 2009
  4. LANTUS [Concomitant]
  5. HUMALOG [Concomitant]

REACTIONS (3)
  - Abortion spontaneous [None]
  - Exposure during pregnancy [None]
  - Fatigue [None]
